FAERS Safety Report 8948098 (Version 2)
Quarter: 2012Q4

REPORT INFORMATION
  Report Type: 
  Country: JP (occurrence: JP)
  Receive Date: 20121204
  Receipt Date: 20121211
  Transmission Date: 20130627
  Serious: Yes (Hospitalization)
  Sender: FDA-Public Use
  Company Number: JP-GLAXOSMITHKLINE-B0842322A

PATIENT
  Age: 10 Year
  Sex: Male

DRUGS (5)
  1. ARRANON [Suspect]
     Indication: T-CELL TYPE ACUTE LEUKAEMIA
     Dosage: 500MG Per day
     Route: 042
     Dates: start: 20121009, end: 20121009
  2. ARRANON [Suspect]
     Indication: T-CELL TYPE ACUTE LEUKAEMIA
     Dosage: 500MG Per day
     Route: 042
     Dates: start: 20121011, end: 20121011
  3. CYLOCIDE [Suspect]
     Indication: PRODUCT USED FOR UNKNOWN INDICATION
     Dosage: 60MG Twice per day
     Route: 042
     Dates: start: 20121009, end: 20121012
  4. CYLOCIDE [Suspect]
     Indication: PRODUCT USED FOR UNKNOWN INDICATION
     Dosage: 30MG Per day
     Dates: start: 20121025
  5. METHOTREXATE [Suspect]
     Indication: PRODUCT USED FOR UNKNOWN INDICATION
     Dosage: 12MG Per day
     Dates: start: 20121023

REACTIONS (6)
  - Vomiting [Recovered/Resolved]
  - Stomatitis [Recovered/Resolved]
  - Pancytopenia [Recovered/Resolved]
  - Anaemia [Recovered/Resolved]
  - Platelet count decreased [Recovered/Resolved]
  - Coagulation time abnormal [Recovered/Resolved]
